FAERS Safety Report 5340972-4 (Version None)
Quarter: 2007Q2

REPORT INFORMATION
  Report Type: 
  Country: None (occurrence: None)
  Receive Date: 20070530
  Receipt Date: 20070516
  Transmission Date: 20071010
  Serious: Yes (Hospitalization)
  Sender: FDA-Public Use
  Company Number: 232685K07USA

PATIENT
  Age: 56 Year
  Sex: Female

DRUGS (5)
  1. REBIF [Suspect]
     Indication: MULTIPLE SCLEROSIS
     Dosage: 44 MCG, 3 IN 1 WEEKS, SUBCUTANEOUS
     Route: 058
     Dates: start: 20061211
  2. PROVIGIL [Suspect]
     Dates: end: 20070401
  3. STEROIDS (CORTICOSTEROID NOS) [Concomitant]
  4. PREDNISONE [Concomitant]
  5. ACCUPRIL [Concomitant]

REACTIONS (5)
  - DIZZINESS [None]
  - HYPERTENSION [None]
  - SPEECH DISORDER [None]
  - VERTIGO [None]
  - VOMITING [None]
